FAERS Safety Report 25739378 (Version 1)
Quarter: 2025Q3

REPORT INFORMATION
  Report Type: Spontaneous
  Country: EU (occurrence: EU)
  Receive Date: 20250829
  Receipt Date: 20250829
  Transmission Date: 20251020
  Serious: Yes (Other)
  Sender: VELOXIS PHARMACEUTICALS
  Company Number: EU-CHIESI-2025CHF05887

PATIENT
  Age: 42 Year
  Sex: Female

DRUGS (29)
  1. TACROLIMUS [Suspect]
     Active Substance: TACROLIMUS
     Indication: Immunosuppressant drug therapy
     Route: 065
  2. TACROLIMUS [Suspect]
     Active Substance: TACROLIMUS
     Route: 065
  3. TACROLIMUS [Suspect]
     Active Substance: TACROLIMUS
     Route: 065
  4. TACROLIMUS [Suspect]
     Active Substance: TACROLIMUS
     Route: 065
  5. TACROLIMUS [Suspect]
     Active Substance: TACROLIMUS
     Route: 065
  6. TACROLIMUS [Suspect]
     Active Substance: TACROLIMUS
     Route: 065
  7. TACROLIMUS [Suspect]
     Active Substance: TACROLIMUS
     Route: 065
  8. TACROLIMUS [Suspect]
     Active Substance: TACROLIMUS
     Route: 065
  9. TACROLIMUS [Suspect]
     Active Substance: TACROLIMUS
     Route: 065
  10. TACROLIMUS [Suspect]
     Active Substance: TACROLIMUS
     Route: 065
  11. TACROLIMUS [Suspect]
     Active Substance: TACROLIMUS
     Route: 065
  12. TACROLIMUS [Suspect]
     Active Substance: TACROLIMUS
     Route: 065
  13. TACROLIMUS [Suspect]
     Active Substance: TACROLIMUS
     Route: 065
  14. TACROLIMUS [Suspect]
     Active Substance: TACROLIMUS
     Route: 065
  15. TACROLIMUS [Suspect]
     Active Substance: TACROLIMUS
     Route: 065
  16. TACROLIMUS [Suspect]
     Active Substance: TACROLIMUS
     Route: 065
  17. TACROLIMUS [Suspect]
     Active Substance: TACROLIMUS
     Route: 065
  18. MEGLUMINE ANTIMONIATE [Suspect]
     Active Substance: MEGLUMINE ANTIMONIATE
     Indication: Visceral leishmaniasis
     Dates: start: 20240103, end: 20240118
  19. PREDNISOLONE [Concomitant]
     Active Substance: PREDNISOLONE
     Indication: Visceral leishmaniasis
     Route: 065
  20. PREDNISOLONE [Concomitant]
     Active Substance: PREDNISOLONE
     Indication: Prophylaxis
  21. AMPHOTERICIN B [Concomitant]
     Active Substance: AMPHOTERICIN B
     Indication: Visceral leishmaniasis
     Route: 065
  22. AMPHOTERICIN B [Concomitant]
     Active Substance: AMPHOTERICIN B
     Indication: Prophylaxis
     Route: 065
  23. AMPHOTERICIN B [Concomitant]
     Active Substance: AMPHOTERICIN B
     Route: 065
  24. AMPHOTERICIN B [Concomitant]
     Active Substance: AMPHOTERICIN B
     Route: 065
  25. AMPHOTERICIN B [Concomitant]
     Active Substance: AMPHOTERICIN B
     Route: 065
  26. AMPHOTERICIN B [Concomitant]
     Active Substance: AMPHOTERICIN B
     Route: 065
  27. AMPHOTERICIN B [Concomitant]
     Active Substance: AMPHOTERICIN B
     Route: 065
  28. AMPHOTERICIN B [Concomitant]
     Active Substance: AMPHOTERICIN B
     Route: 065
  29. AMPHOTERICIN B [Concomitant]
     Active Substance: AMPHOTERICIN B
     Route: 065

REACTIONS (2)
  - Renal tubular disorder [Recovered/Resolved]
  - Arterial disorder [Recovered/Resolved]

NARRATIVE: CASE EVENT DATE: 20240101
